FAERS Safety Report 23300390 (Version 1)
Quarter: 2023Q4

REPORT INFORMATION
  Report Type: Spontaneous
  Country: US (occurrence: US)
  Receive Date: 20231215
  Receipt Date: 20231215
  Transmission Date: 20240110
  Serious: Yes (Hospitalization, Other)
  Sender: FDA-Public Use
  Company Number: US-AVET LIFESCIENCES LTD-2023-AVET-000360

PATIENT
  Age: 26 Year
  Sex: Male

DRUGS (3)
  1. SERTRALINE HYDROCHLORIDE [Suspect]
     Active Substance: SERTRALINE HYDROCHLORIDE
     Indication: Major depression
     Dosage: 100 MILLIGRAM DAILY
  2. BUPROPION HYDROCHLORIDE [Suspect]
     Active Substance: BUPROPION HYDROCHLORIDE
     Indication: Major depression
     Dosage: 75 MILLIGRAM
  3. BUPROPION HYDROCHLORIDE [Suspect]
     Active Substance: BUPROPION HYDROCHLORIDE
     Dosage: TITRATED UP TO 300 MG

REACTIONS (2)
  - Sleep paralysis [Recovered/Resolved]
  - Initial insomnia [Recovered/Resolved]
